FAERS Safety Report 10210098 (Version 1)
Quarter: 2014Q2

REPORT INFORMATION
  Report Type: Other
  Country: CO (occurrence: CO)
  Receive Date: 20140602
  Receipt Date: 20140602
  Transmission Date: 20141212
  Serious: Yes (Hospitalization)
  Sender: FDA-Public Use
  Company Number: CO-SHIRE-CO201402550

PATIENT
  Age: 5 Year
  Sex: Male
  Weight: 24 kg

DRUGS (1)
  1. ELAPRASE [Suspect]
     Indication: MUCOPOLYSACCHARIDOSIS II
     Dosage: 12 MG, (2 VIALS), EVERY 8 DAYS
     Route: 041
     Dates: start: 20130411

REACTIONS (1)
  - Oxygen saturation decreased [Not Recovered/Not Resolved]
